FAERS Safety Report 12708658 (Version 2)
Quarter: 2016Q3

REPORT INFORMATION
  Report Type: Spontaneous
  Country: US (occurrence: US)
  Receive Date: 20160901
  Receipt Date: 20160907
  Transmission Date: 20161109
  Serious: No
  Sender: FDA-Public Use
  Company Number: US-GILEAD-2016-0230893

PATIENT
  Age: 38 Year
  Sex: Female

DRUGS (2)
  1. SOVALDI [Suspect]
     Active Substance: SOFOSBUVIR
     Indication: CHRONIC HEPATITIS C
     Dosage: 400 MG, UNK
     Route: 048
     Dates: start: 20150506, end: 20150912
  2. RIBASPHERE [Concomitant]
     Active Substance: RIBAVIRIN
     Indication: PRODUCT USED FOR UNKNOWN INDICATION

REACTIONS (14)
  - Dyspnoea [Unknown]
  - Mood altered [Unknown]
  - Vision blurred [Not Recovered/Not Resolved]
  - Visual impairment [Unknown]
  - Fatigue [Unknown]
  - Red blood cell count abnormal [Unknown]
  - Asthma [Not Recovered/Not Resolved]
  - Aphasia [Not Recovered/Not Resolved]
  - Abnormal behaviour [Unknown]
  - Anaemia [Unknown]
  - Corrective lens user [Unknown]
  - Apathy [Unknown]
  - Social avoidant behaviour [Unknown]
  - Speech disorder [Not Recovered/Not Resolved]
